FAERS Safety Report 7577381-3 (Version None)
Quarter: 2011Q2

REPORT INFORMATION
  Report Type: 
  Country: None (occurrence: None)
  Receive Date: 20110628
  Receipt Date: 20110613
  Transmission Date: 20111010
  Serious: Yes (Other)
  Sender: FDA-Public Use
  Company Number: US-BAYER-2011-041830

PATIENT
  Age: 43 Year
  Sex: Female

DRUGS (1)
  1. MAGNEVIST [Suspect]
     Indication: MAGNETIC RESONANCE CHOLANGIOPANCREATOGRAPHY
     Dosage: 20 ML, ONCE
     Dates: start: 20110505, end: 20110505

REACTIONS (4)
  - ORAL DISCOMFORT [None]
  - LIP PRURITUS [None]
  - LIP SWELLING [None]
  - PRURITUS GENERALISED [None]
